FAERS Safety Report 7341172-9 (Version None)
Quarter: 2011Q1

REPORT INFORMATION
  Report Type: 
  Country: None (occurrence: None)
  Receive Date: 20110309
  Receipt Date: 20110301
  Transmission Date: 20110831
  Serious: Yes (Death, Hospitalization)
  Sender: FDA-Public Use
  Company Number: B0701409A

PATIENT
  Sex: Male
  Weight: 120.5 kg

DRUGS (5)
  1. HUMULIN R [Concomitant]
  2. ATACAND [Concomitant]
  3. AVANDIA [Suspect]
     Route: 048
     Dates: start: 20000101, end: 20010101
  4. ATENOLOL [Concomitant]
  5. PRANDIN [Concomitant]

REACTIONS (6)
  - URINARY TRACT INFECTION [None]
  - CARDIAC FAILURE CONGESTIVE [None]
  - TRANSIENT ISCHAEMIC ATTACK [None]
  - SEPSIS [None]
  - CEREBROVASCULAR ACCIDENT [None]
  - CARDIAC DISORDER [None]
